FAERS Safety Report 19391187 (Version 3)
Quarter: 2022Q1

REPORT INFORMATION
  Report Type: Spontaneous
  Country: ZW (occurrence: ZW)
  Receive Date: 20210608
  Receipt Date: 20220302
  Transmission Date: 20220423
  Serious: Yes (Other)
  Sender: FDA-Public Use
  Company Number: ZW-GLAXOSMITHKLINE-ZWCH2021GSK034758

PATIENT
  Age: 31 Year
  Sex: Female

DRUGS (4)
  1. IBUPROFEN [Suspect]
     Active Substance: IBUPROFEN
     Indication: Pelvic pain
     Dosage: UNK, TID
     Route: 048
     Dates: start: 20210227, end: 20210304
  2. ACETAMINOPHEN [Suspect]
     Active Substance: ACETAMINOPHEN
     Indication: Pelvic pain
     Dosage: 6 DAYS, TID
     Route: 048
     Dates: start: 20210227
  3. COCODAMOL [Concomitant]
     Active Substance: ACETAMINOPHEN\CODEINE PHOSPHATE
     Indication: Pelvic pain
     Dosage: UNK
  4. INTRAUTERINE DEVICE [Concomitant]
     Active Substance: INTRAUTERINE DEVICE
     Indication: Product used for unknown indication
     Dosage: UNK

REACTIONS (1)
  - Drug-induced liver injury [Recovered/Resolved]

NARRATIVE: CASE EVENT DATE: 20210311
